FAERS Safety Report 21632485 (Version 1)
Quarter: 2022Q4

REPORT INFORMATION
  Report Type: Spontaneous
  Country: GB (occurrence: GB)
  Receive Date: 20221123
  Receipt Date: 20221123
  Transmission Date: 20230113
  Serious: Yes (Disabling)
  Sender: FDA-Public Use
  Company Number: None

PATIENT
  Age: 61 Year
  Sex: Male

DRUGS (3)
  1. ATORVASTATIN [Suspect]
     Active Substance: ATORVASTATIN
     Indication: Coronavirus infection
  2. BACLOFEN [Concomitant]
     Active Substance: BACLOFEN
     Indication: Torticollis
  3. GABAPENTIN [Concomitant]
     Active Substance: GABAPENTIN
     Indication: Dystonia

REACTIONS (1)
  - Hallucination [Not Recovered/Not Resolved]
